FAERS Safety Report 16407829 (Version 2)
Quarter: 2019Q2

REPORT INFORMATION
  Report Type: Spontaneous
  Country: CA (occurrence: CA)
  Receive Date: 20190610
  Receipt Date: 20190620
  Transmission Date: 20190711
  Serious: Yes (Hospitalization, Other)
  Sender: FDA-Public Use
  Company Number: CA-CELLTRION INC.-2019CA018138

PATIENT

DRUGS (7)
  1. INFLECTRA [Suspect]
     Active Substance: INFLIXIMAB-DYYB
     Dosage: 700 MG Q (EVERY) 0-2-6 WEEKS, THEN EVERY 8 WEEKS MAINTANCE
     Route: 042
     Dates: start: 20181227
  2. MARIJUANA [Concomitant]
     Active Substance: CANNABIS SATIVA SUBSP. INDICA TOP
     Dosage: UNK
  3. INFLECTRA [Suspect]
     Active Substance: INFLIXIMAB-DYYB
     Indication: CROHN^S DISEASE
     Dosage: 700 MG Q (EVERY) 0-2-6 WEEKS, THEN EVERY 8 WEEKS MAINTANCE
     Route: 042
     Dates: start: 20181213
  4. INFLECTRA [Suspect]
     Active Substance: INFLIXIMAB-DYYB
     Dosage: 800 MILLIGRAM EVERY 6 WEEKS
     Route: 042
     Dates: start: 20190522
  5. ADVIL [IBUPROFEN] [Concomitant]
     Active Substance: IBUPROFEN
     Indication: ABDOMINAL PAIN UPPER
     Dosage: UNK
  6. ADVIL [IBUPROFEN] [Concomitant]
     Active Substance: IBUPROFEN
     Indication: PYREXIA
     Dosage: UNK
  7. FLUOXETINE HCL [Concomitant]
     Active Substance: FLUOXETINE HYDROCHLORIDE
     Indication: ANXIETY
     Dosage: 10 MG, DAILY
     Dates: start: 201901

REACTIONS (22)
  - Pyrexia [Unknown]
  - Weight decreased [Unknown]
  - Condition aggravated [Unknown]
  - Suicidal ideation [Unknown]
  - Off label use [Unknown]
  - Decreased appetite [Unknown]
  - Abdominal pain [Recovered/Resolved]
  - Bowel movement irregularity [Unknown]
  - Eating disorder [Unknown]
  - Insomnia [Unknown]
  - Anxiety disorder [Unknown]
  - Vomiting [Recovered/Resolved]
  - Abdominal pain [Not Recovered/Not Resolved]
  - Depression [Unknown]
  - Product use issue [Unknown]
  - Malaise [Unknown]
  - Pain [Recovering/Resolving]
  - Agitation [Unknown]
  - Tenderness [Not Recovered/Not Resolved]
  - Nausea [Recovered/Resolved]
  - Abdominal distension [Unknown]
  - Diarrhoea [Unknown]
